FAERS Safety Report 15278663 (Version 3)
Quarter: 2018Q3

REPORT INFORMATION
  Report Type: Report from Study
  Country: None (occurrence: PR)
  Receive Date: 20180815
  Receipt Date: 20180829
  Transmission Date: 20181010
  Serious: Yes (Other)
  Sender: FDA-Public Use
  Company Number: PR-ABBVIE-18K-131-2449472-00

PATIENT
  Age: 62 Year
  Sex: Female

DRUGS (1)
  1. HUMIRA [Suspect]
     Active Substance: ADALIMUMAB
     Indication: CROHN^S DISEASE
     Route: 058
     Dates: start: 20150619, end: 20180729

REACTIONS (4)
  - Joint injury [Unknown]
  - Limb injury [Unknown]
  - Fall [Unknown]
  - Post procedural cellulitis [Unknown]

NARRATIVE: CASE EVENT DATE: 2018
